FAERS Safety Report 24208718 (Version 1)
Quarter: 2024Q3

REPORT INFORMATION
  Report Type: Spontaneous
  Country: SE (occurrence: SE)
  Receive Date: 20240814
  Receipt Date: 20240814
  Transmission Date: 20241017
  Serious: Yes (Hospitalization)
  Sender: MALLINCKRODT
  Company Number: SE-MALLINCKRODT-MNK202405092

PATIENT
  Sex: Female
  Weight: 44 kg

DRUGS (1)
  1. UVADEX [Suspect]
     Active Substance: METHOXSALEN
     Indication: Heart transplant rejection
     Dosage: UNKNOWN
     Route: 050

REACTIONS (2)
  - Anaemia [Recovering/Resolving]
  - Product use in unapproved indication [Unknown]

NARRATIVE: CASE EVENT DATE: 20240802
